FAERS Safety Report 4516399-1 (Version None)
Quarter: 2004Q4

REPORT INFORMATION
  Report Type: 
  Country: None (occurrence: None)
  Receive Date: 20041202
  Receipt Date: 20041026
  Transmission Date: 20050328
  Serious: Yes (Hospitalization)
  Sender: FDA-Public Use
  Company Number: 200418260US

PATIENT
  Sex: Female
  Weight: 72 kg

DRUGS (3)
  1. KETEK [Suspect]
     Indication: URINARY TRACT INFECTION
     Route: 048
     Dates: start: 20040817, end: 20040822
  2. OMNICEF [Concomitant]
     Indication: CYSTITIS
  3. MAGNESIUM CITRATE [Concomitant]

REACTIONS (4)
  - ASTHENIA [None]
  - CARDIAC DISORDER [None]
  - RENAL FAILURE [None]
  - SUPRAVENTRICULAR TACHYCARDIA [None]
